FAERS Safety Report 23637472 (Version 3)
Quarter: 2025Q4

REPORT INFORMATION
  Report Type: Spontaneous
  Country: EU (occurrence: EU)
  Receive Date: 20240315
  Receipt Date: 20251224
  Transmission Date: 20260117
  Serious: Yes (Other)
  Sender: SANDOZ
  Company Number: EU-PFM-2022-01325

PATIENT
  Age: 37 Year
  Sex: Male

DRUGS (13)
  1. MYCOPHENOLATE MOFETIL [Suspect]
     Active Substance: MYCOPHENOLATE MOFETIL
     Indication: Prophylaxis against graft versus host disease
     Dosage: 3 MG/KG 3 DAYS BEFORE DUCBT AND 1 MONTH AFTER
  2. FLUDARABINE [Suspect]
     Active Substance: FLUDARABINE PHOSPHATE
     Indication: Cord blood transplant therapy
     Dosage: 40 MG/M2
  3. FLUDARABINE [Suspect]
     Active Substance: FLUDARABINE PHOSPHATE
     Indication: Bone marrow conditioning regimen
  4. GEMCITABINE [Suspect]
     Active Substance: GEMCITABINE
     Indication: Hodgkin^s disease
     Dosage: 800 MG/M2, ON DAYS 1 AND 8 EVERY 21 DAYS
  5. VINORELBINE [Suspect]
     Active Substance: VINORELBINE TARTRATE
     Indication: Hodgkin^s disease
     Dosage: 15 MG/M2, ON DAYS 1 AND 8 EVERY 21 DAYS
  6. ADRIACIN [Suspect]
     Active Substance: DOXORUBICIN HYDROCHLORIDE
     Indication: Hodgkin^s disease
     Dosage: 10 MG/M2, ON DAYS 1 AND 8 EVERY 21 DAYS
  7. CYCLOSPORINE [Suspect]
     Active Substance: CYCLOSPORINE
     Indication: Prophylaxis against graft versus host disease
     Dosage: 3 MG/KG, PER DAY
  8. TEPADINA [Suspect]
     Active Substance: THIOTEPA
     Indication: Neoplasm malignant
     Dosage: 5-0 MG/KG
  9. TEPADINA [Suspect]
     Active Substance: THIOTEPA
     Indication: Cord blood transplant therapy
  10. BUSULFAN [Suspect]
     Active Substance: BUSULFAN
     Indication: Cord blood transplant therapy
     Dosage: 3.2 MG/KG
  11. BUSULFAN [Suspect]
     Active Substance: BUSULFAN
     Indication: Bone marrow conditioning regimen
     Dosage: 3.2 MG/KG
  12. THYMOGLOBULINE [Suspect]
     Active Substance: LAPINE T-LYMPHOCYTE IMMUNE GLOBULIN
     Indication: Bone marrow conditioning regimen
     Dosage: 5 MG/KG
  13. THYMOGLOBULINE [Suspect]
     Active Substance: LAPINE T-LYMPHOCYTE IMMUNE GLOBULIN
     Indication: Cord blood transplant therapy

REACTIONS (8)
  - Retinopathy haemorrhagic [Recovered/Resolved]
  - Hyperfibrinogenaemia [Recovering/Resolving]
  - Thrombocytopenia [Recovered/Resolved]
  - Headache [Unknown]
  - Neck pain [Unknown]
  - Product use in unapproved indication [Unknown]
  - Off label use [Unknown]
  - Visual field defect [Unknown]
